FAERS Safety Report 10217533 (Version 1)
Quarter: 2014Q2

REPORT INFORMATION
  Report Type: Spontaneous
  Country: US (occurrence: US)
  Receive Date: 20140604
  Receipt Date: 20140604
  Transmission Date: 20141212
  Serious: Yes (Other)
  Sender: FDA-Public Use
  Company Number: US-MYLANLABS-2014S1012525

PATIENT
  Age: 28 Year
  Sex: Female

DRUGS (1)
  1. TOPIRAMATE [Suspect]
     Route: 065

REACTIONS (1)
  - Renal tubular acidosis [Recovering/Resolving]
